FAERS Safety Report 4715988-9 (Version None)
Quarter: 2005Q3

REPORT INFORMATION
  Report Type: 
  Country: None (occurrence: None)
  Receive Date: 20050718
  Receipt Date: 20050714
  Transmission Date: 20060218
  Serious: Yes (Life-Threatening)
  Sender: FDA-Public Use
  Company Number: US-GLAXOSMITHKLINE-A0566187A

PATIENT
  Sex: Female

DRUGS (1)
  1. COMBIVIR [Suspect]
     Indication: ANTIVIRAL PROPHYLAXIS
     Route: 048

REACTIONS (6)
  - ASTHENIA [None]
  - BACK DISORDER [None]
  - BACK INJURY [None]
  - FATIGUE [None]
  - HYPERSENSITIVITY [None]
  - OSTEOPOROSIS [None]
